FAERS Safety Report 26219206 (Version 1)
Quarter: 2025Q4

REPORT INFORMATION
  Report Type: Spontaneous
  Country: TW (occurrence: TW)
  Receive Date: 20251231
  Receipt Date: 20251231
  Transmission Date: 20260118
  Serious: Yes (Death, Life-Threatening, Other)
  Sender: PFIZER
  Company Number: TW-PFIZER INC-PV202500151350

PATIENT
  Age: 29 Year
  Sex: Male

DRUGS (11)
  1. AVIBACTAM SODIUM\CEFTAZIDIME [Suspect]
     Active Substance: AVIBACTAM SODIUM\CEFTAZIDIME
     Indication: Pseudomonal bacteraemia
     Dosage: 2.5 G, 3X/DAY
     Route: 042
     Dates: start: 20250405, end: 20250408
  2. MEROPENEM [Suspect]
     Active Substance: MEROPENEM
     Indication: Pseudomonal bacteraemia
     Dosage: 500 MG, 3X/DAY
     Route: 042
     Dates: start: 20250405, end: 20250406
  3. AMIKACIN [Suspect]
     Active Substance: AMIKACIN
     Indication: Pseudomonal bacteraemia
     Dosage: 250 MG, 1X/DAY
     Route: 042
     Dates: start: 20250406, end: 20250410
  4. TEICOPLANIN [Suspect]
     Active Substance: TEICOPLANIN
     Indication: Staphylococcal infection
     Dosage: 200 MG, 2X/DAY
     Route: 042
     Dates: start: 20250406
  5. TEICOPLANIN [Suspect]
     Active Substance: TEICOPLANIN
     Dosage: 200 MG, 1X/DAY
     Route: 042
     Dates: end: 20250410
  6. COLISTIN [Suspect]
     Active Substance: COLISTIN
     Indication: Pseudomonal bacteraemia
     Dosage: 9 MIU LOADING DOSE
     Route: 042
     Dates: start: 20250405
  7. COLISTIN [Suspect]
     Active Substance: COLISTIN
     Dosage: 4.5 MIU, 2X/DAY
     Route: 042
     Dates: end: 20250410
  8. CEFOPERAZONE SODIUM\SULBACTAM SODIUM [Suspect]
     Active Substance: CEFOPERAZONE SODIUM\SULBACTAM SODIUM
     Indication: Pseudomonal bacteraemia
     Dosage: 2 G, 2X/DAY
     Route: 042
     Dates: start: 20250404, end: 20250405
  9. FLUCONAZOLE [Concomitant]
     Active Substance: FLUCONAZOLE
     Indication: Evidence based treatment
     Dosage: 200 MG, 1X/DAY
     Route: 048
     Dates: start: 20250403, end: 20250405
  10. ISAVUCONAZOLE [Concomitant]
     Active Substance: ISAVUCONAZOLE
     Indication: Evidence based treatment
     Dosage: 200 MG, 3X/DAY
     Dates: start: 20250406
  11. ISAVUCONAZOLE [Concomitant]
     Active Substance: ISAVUCONAZOLE
     Dosage: 200 MG, 1X/DAY
     Route: 042
     Dates: end: 20250410

REACTIONS (4)
  - Drug ineffective [Fatal]
  - Acute respiratory distress syndrome [Fatal]
  - Septic shock [Fatal]
  - Acute myeloid leukaemia refractory [Fatal]
